FAERS Safety Report 4683777-X (Version None)
Quarter: 2005Q2

REPORT INFORMATION
  Report Type: 
  Country: None (occurrence: None)
  Receive Date: 20050602
  Receipt Date: 20050125
  Transmission Date: 20051028
  Serious: No
  Sender: FDA-Public Use
  Company Number: USA050189233

PATIENT
  Age: 56 Year
  Sex: Female

DRUGS (7)
  1. CYMBALTA [Suspect]
     Indication: DEPRESSION
     Dosage: 20 MG DAY
     Dates: start: 20050122, end: 20050124
  2. FLUTICASONE PROPIONATE W/SALMETEROL [Concomitant]
  3. PROTONIX [Concomitant]
  4. FLONASE [Concomitant]
  5. TYLENOL W/ CODEINE NO. 3 [Concomitant]
  6. LORAZEPAM [Concomitant]
  7. AMBIEN [Concomitant]

REACTIONS (4)
  - CHEST DISCOMFORT [None]
  - DYSPNOEA [None]
  - NAUSEA [None]
  - SENSORY DISTURBANCE [None]
